FAERS Safety Report 5518171-2 (Version None)
Quarter: 2007Q4

REPORT INFORMATION
  Report Type: 
  Country: None (occurrence: None)
  Receive Date: 20071115
  Receipt Date: 20071105
  Transmission Date: 20080405
  Serious: Yes (Other)
  Sender: FDA-Public Use
  Company Number: GB-JNJFOC-20071101576

PATIENT
  Age: 22 Year
  Sex: Female
  Weight: 81.5 kg

DRUGS (1)
  1. INFLIXIMAB [Suspect]
     Indication: HIDRADENITIS
     Route: 042

REACTIONS (3)
  - ACTIVITIES OF DAILY LIVING IMPAIRED [None]
  - PAIN [None]
  - SYNOVITIS [None]
